FAERS Safety Report 4712868-X (Version None)
Quarter: 2005Q3

REPORT INFORMATION
  Report Type: 
  Country: None (occurrence: None)
  Receive Date: 20050712
  Receipt Date: 20050712
  Transmission Date: 20060218
  Serious: Yes (Hospitalization)
  Sender: FDA-Public Use
  Company Number: None

PATIENT
  Sex: Male
  Weight: 56.6996 kg

DRUGS (4)
  1. CAPECITABINE     ROCHE [Suspect]
     Indication: NEOPLASM MALIGNANT
     Dosage: 1500 MG   DIVIDED BID   ORAL
     Route: 048
     Dates: start: 20050627, end: 20050707
  2. CISPLATIN [Suspect]
     Indication: NEOPLASM MALIGNANT
     Dosage: 173 MG   Q 28 DAYS   INTRAVENOU
     Route: 042
     Dates: start: 20050627, end: 20050627
  3. ONDANSETRON [Concomitant]
  4. IV FLUID AND IV ANTIBIOTICS [Concomitant]

REACTIONS (1)
  - DEHYDRATION [None]
